FAERS Safety Report 4899257-2 (Version None)
Quarter: 2006Q1

REPORT INFORMATION
  Report Type: 
  Country: None (occurrence: None)
  Receive Date: 20060131
  Receipt Date: 20060118
  Transmission Date: 20060701
  Serious: Yes (Other)
  Sender: FDA-Public Use
  Company Number: HQWYE402318JAN06

PATIENT
  Age: 31 Year
  Sex: Female

DRUGS (2)
  1. EFEXOR XR (VENLAFAXINE HYDROCHLORIDE, CAPSULE, EXTENDED RELEASE) [Suspect]
     Indication: DEPRESSION
     Dosage: 750 MG (OVERDOSE AMOUNT) ORAL
     Route: 048
     Dates: start: 20060118, end: 20060118
  2. ANTIDEPRESSANT (ANTIDEPRESSANT) [Concomitant]

REACTIONS (5)
  - FACE OEDEMA [None]
  - INTENTIONAL DRUG MISUSE [None]
  - INTENTIONAL OVERDOSE [None]
  - SOMNOLENCE [None]
  - SUICIDE ATTEMPT [None]
